FAERS Safety Report 4895289-9 (Version None)
Quarter: 2005Q4

REPORT INFORMATION
  Report Type: 
  Country: None (occurrence: None)
  Receive Date: 20051220
  Receipt Date: 20050707
  Transmission Date: 20060501
  Serious: Yes (Other)
  Sender: FDA-Public Use
  Company Number: US141521

PATIENT
  Age: 53 Year
  Sex: Female

DRUGS (2)
  1. ENBREL [Suspect]
     Indication: PSORIATIC ARTHROPATHY
     Dosage: 25 MG, 2 IN 1 WEEKS
     Dates: start: 20040606
  2. METHOTREXATE [Concomitant]

REACTIONS (1)
  - CHRONIC MYELOID LEUKAEMIA [None]
